FAERS Safety Report 5036797-X (Version None)
Quarter: 2006Q2

REPORT INFORMATION
  Report Type: 
  Country: None (occurrence: None)
  Receive Date: 20060626
  Receipt Date: 20060531
  Transmission Date: 20061013
  Serious: Yes (Hospitalization)
  Sender: FDA-Public Use
  Company Number: 2006015284

PATIENT
  Age: 75 Year
  Sex: Male

DRUGS (4)
  1. CARDURA [Suspect]
     Indication: BENIGN PROSTATIC HYPERPLASIA
     Dosage: 4 MG (4 MG, 1 IN 1 D), ORAL
     Route: 048
     Dates: start: 20040504, end: 20051101
  2. ASPIRIN [Concomitant]
  3. ISOSORBIDE (ISOSORBIDE) [Concomitant]
  4. AMIODARONE (AMIODARONE) [Concomitant]

REACTIONS (4)
  - ASTHENIA [None]
  - CONDITION AGGRAVATED [None]
  - DIFFICULTY IN WALKING [None]
  - OSTEOARTHRITIS [None]
